FAERS Safety Report 4309451-7 (Version None)
Quarter: 2004Q1

REPORT INFORMATION
  Report Type: 
  Country: None (occurrence: None)
  Receive Date: 20040301
  Receipt Date: 20040217
  Transmission Date: 20041129
  Serious: Yes (Other)
  Sender: FDA-Public Use
  Company Number: 2004010820

PATIENT
  Age: 43 Year
  Sex: Female
  Weight: 63 kg

DRUGS (2)
  1. SERTRALINE (SERTRALINE) [Suspect]
     Indication: DEPRESSION
     Dosage: 50 MG DAILY, ORAL
     Route: 048
     Dates: start: 20040203, end: 20040206
  2. TRAMADOL (TRAMADOL) [Concomitant]

REACTIONS (4)
  - GLOSSODYNIA [None]
  - ORAL NEOPLASM [None]
  - SWELLING FACE [None]
  - WHEEZING [None]
